FAERS Safety Report 10753403 (Version 1)
Quarter: 2015Q1

REPORT INFORMATION
  Report Type: Spontaneous
  Country: US (occurrence: US)
  Receive Date: 20150131
  Receipt Date: 20150131
  Transmission Date: 20150721
  Serious: Yes (Hospitalization)
  Sender: FDA-Public Use
  Company Number: US-ACCORD-028311

PATIENT
  Age: 25 Year
  Sex: Female

DRUGS (6)
  1. FISH OIL [Concomitant]
     Active Substance: FISH OIL
  2. SERTRALINE [Suspect]
     Active Substance: SERTRALINE HYDROCHLORIDE
     Indication: DEPRESSION
     Dosage: 50 MG ONCE DAILY WAS INITIATED AND THEN TITRATED UP TO 150 MG DAILY OVER THE COURSE OF 2 MONTHS
  3. VITAMINS NOS [Concomitant]
     Active Substance: VITAMINS
  4. MAGNESIUM SULFATE. [Concomitant]
     Active Substance: MAGNESIUM SULFATE
  5. BIOTIN [Concomitant]
     Active Substance: BIOTIN
  6. POTASSIUM [Concomitant]
     Active Substance: POTASSIUM

REACTIONS (5)
  - Insomnia [Unknown]
  - Drug withdrawal syndrome [Unknown]
  - Rhabdomyolysis [Recovering/Resolving]
  - Depressed mood [Unknown]
  - Suicidal ideation [Unknown]
